FAERS Safety Report 24170892 (Version 1)
Quarter: 2024Q3

REPORT INFORMATION
  Report Type: Spontaneous
  Country: IN (occurrence: IN)
  Receive Date: 20240805
  Receipt Date: 20240805
  Transmission Date: 20241016
  Serious: Yes (Hospitalization, Other)
  Sender: LUPIN
  Company Number: IN-LUPIN PHARMACEUTICALS INC.-2024-07414

PATIENT
  Age: 55 Year
  Sex: Male

DRUGS (1)
  1. METFORMIN [Suspect]
     Active Substance: METFORMIN HYDROCHLORIDE
     Indication: Diabetes mellitus
     Dosage: 1000 MG, QD
     Route: 065

REACTIONS (3)
  - Encephalopathy [Recovered/Resolved]
  - Lactic acidosis [Recovered/Resolved]
  - Contraindicated product administered [Unknown]
